FAERS Safety Report 6108676-8 (Version None)
Quarter: 2009Q1

REPORT INFORMATION
  Report Type: 
  Country: None (occurrence: None)
  Receive Date: 20090305
  Receipt Date: 20090220
  Transmission Date: 20090719
  Serious: Yes (Other)
  Sender: FDA-Public Use
  Company Number: 2009000491

PATIENT
  Age: 64 Year
  Sex: Female

DRUGS (1)
  1. TARCEVA [Suspect]
     Indication: LUNG NEOPLASM MALIGNANT
     Dosage: (150 MG, QD), ORAL
     Route: 048

REACTIONS (3)
  - DISEASE PROGRESSION [None]
  - INTRACRANIAL PRESSURE INCREASED [None]
  - METASTASES TO CENTRAL NERVOUS SYSTEM [None]
